FAERS Safety Report 15812685 (Version 1)
Quarter: 2019Q1

REPORT INFORMATION
  Report Type: Spontaneous
  Country: US (occurrence: US)
  Receive Date: 20190107
  Receipt Date: 20190107
  Transmission Date: 20190417
  Serious: No
  Sender: FDA-Public Use
  Company Number: None

PATIENT

DRUGS (2)
  1. COMPAZINE [Suspect]
     Active Substance: PROCHLORPERAZINE MALEATE
     Route: 054
  2. PROMETHAZINE SUPPOSITORY [Suspect]
     Active Substance: PROMETHAZINE\PROMETHAZINE HYDROCHLORIDE
     Route: 054

REACTIONS (2)
  - Product dispensing error [None]
  - Transcription medication error [None]
